FAERS Safety Report 16053492 (Version 1)
Quarter: 2019Q1

REPORT INFORMATION
  Report Type: Spontaneous
  Country: US (occurrence: US)
  Receive Date: 20190308
  Receipt Date: 20190308
  Transmission Date: 20190418
  Serious: No
  Sender: FDA-Public Use
  Company Number: US-PFIZER INC-2019096351

PATIENT
  Age: 62 Year
  Sex: Female
  Weight: 27.67 kg

DRUGS (1)
  1. IRINOTECAN HCL [Suspect]
     Active Substance: IRINOTECAN HYDROCHLORIDE
     Indication: PANCREATIC CARCINOMA
     Dosage: 300 MG, UNK
     Dates: start: 20190219

REACTIONS (3)
  - Swollen tongue [Unknown]
  - Oesophageal oedema [Unknown]
  - Dysarthria [Unknown]

NARRATIVE: CASE EVENT DATE: 20190219
